FAERS Safety Report 21464747 (Version 1)
Quarter: 2022Q4

REPORT INFORMATION
  Report Type: Spontaneous
  Country: US (occurrence: US)
  Receive Date: 20221017
  Receipt Date: 20221017
  Transmission Date: 20230113
  Serious: No
  Sender: FDA-Public Use
  Company Number: US-MICRO LABS LIMITED-ML2022-05159

PATIENT
  Age: 94 Year
  Sex: Female

DRUGS (3)
  1. DORZOLAMIDE [Suspect]
     Active Substance: DORZOLAMIDE
     Indication: Glaucoma
     Route: 047
     Dates: start: 202209
  2. LATANOPROST [Concomitant]
     Active Substance: LATANOPROST
     Indication: Glaucoma
     Dosage: SHE HAS USED FOR MANY YEARS AND SHE HAS NO PROBLEM WITH THOSE
  3. TIMOLOL, [Concomitant]
     Indication: Glaucoma
     Dosage: SHE HAS USED FOR MANY YEARS AND SHE HAS NO PROBLEM WITH THOSE

REACTIONS (1)
  - Balance disorder [Unknown]
